FAERS Safety Report 7064096-3 (Version None)
Quarter: 2010Q4

REPORT INFORMATION
  Report Type: 
  Country: None (occurrence: None)
  Receive Date: 20101027
  Receipt Date: 20101018
  Transmission Date: 20110411
  Serious: Yes (Disabling, Other)
  Sender: FDA-Public Use
  Company Number: US-ELI_LILLY_AND_COMPANY-US201010004145

PATIENT
  Sex: Female

DRUGS (2)
  1. BYETTA [Suspect]
     Indication: TYPE 2 DIABETES MELLITUS
     Dosage: 10 UG, 2/D
     Route: 058
  2. HUMALOG MIX [Concomitant]
     Indication: TYPE 2 DIABETES MELLITUS

REACTIONS (13)
  - BLOOD GLUCOSE INCREASED [None]
  - CATARACT [None]
  - EYE PAIN [None]
  - GAIT DISTURBANCE [None]
  - HALLUCINATION [None]
  - INCORRECT DOSE ADMINISTERED [None]
  - MEMORY IMPAIRMENT [None]
  - OFF LABEL USE [None]
  - PAIN IN EXTREMITY [None]
  - SPINAL COLUMN STENOSIS [None]
  - SUTURE RELATED COMPLICATION [None]
  - TREMOR [None]
  - VISUAL ACUITY REDUCED [None]
